FAERS Safety Report 6761381-7 (Version None)
Quarter: 2010Q2

REPORT INFORMATION
  Report Type: 
  Country: None (occurrence: None)
  Receive Date: 20100607
  Receipt Date: 20100524
  Transmission Date: 20101027
  Serious: Yes (Death)
  Sender: FDA-Public Use
  Company Number: TOR 2010-0034 (1)

PATIENT
  Age: 73 Year
  Sex: Female

DRUGS (6)
  1. FARESTON [Suspect]
     Indication: BREAST CANCER STAGE III
     Dosage: 120 MG; ORAL
     Route: 048
     Dates: start: 20080711, end: 20080902
  2. NU-LOTAN [Concomitant]
  3. AMLODIN [Concomitant]
  4. ARTIST [Concomitant]
  5. SIGMART [Concomitant]
  6. LASIX [Concomitant]

REACTIONS (3)
  - DISSEMINATED INTRAVASCULAR COAGULATION [None]
  - HAEMORRHAGE [None]
  - RENAL FAILURE ACUTE [None]
